FAERS Safety Report 11237898 (Version 3)
Quarter: 2017Q1

REPORT INFORMATION
  Report Type: Spontaneous
  Country: JP (occurrence: JP)
  Receive Date: 20150703
  Receipt Date: 20170221
  Transmission Date: 20170428
  Serious: Yes (Other)
  Sender: FDA-Public Use
  Company Number: JP-BRISTOL-MYERS SQUIBB COMPANY-BMS-2015-003684

PATIENT
  Age: 10 Year
  Sex: Male
  Weight: 50 kg

DRUGS (36)
  1. CYLOCIDE [Suspect]
     Active Substance: CYTARABINE
     Indication: ACUTE LYMPHOCYTIC LEUKAEMIA
     Dosage: 2740 MG, BID
     Route: 041
     Dates: start: 20130305, end: 20130306
  2. DAUNOMYCIN                         /00128201/ [Suspect]
     Active Substance: DAUNORUBICIN
     Indication: PHILADELPHIA CHROMOSOME POSITIVE
     Route: 065
  3. LEUKERIN [Suspect]
     Active Substance: MERCAPTOPURINE
     Indication: ACUTE LYMPHOCYTIC LEUKAEMIA
     Dosage: 80 MG, QD
     Route: 048
     Dates: start: 20121217, end: 20130113
  4. LEUKERIN [Suspect]
     Active Substance: MERCAPTOPURINE
     Indication: PHILADELPHIA CHROMOSOME POSITIVE
     Route: 065
  5. IFOMIDE [Suspect]
     Active Substance: IFOSFAMIDE
     Indication: ACUTE LYMPHOCYTIC LEUKAEMIA
     Dosage: 1 G, BID
     Route: 041
     Dates: start: 20130530, end: 20130601
  6. SPRYCEL [Suspect]
     Active Substance: DASATINIB
     Indication: PHILADELPHIA CHROMOSOME POSITIVE
     Route: 065
  7. PREDONINE [Suspect]
     Active Substance: PREDNISOLONE
     Indication: PHILADELPHIA CHROMOSOME POSITIVE
     Route: 065
  8. DECADRON [Suspect]
     Active Substance: DEXAMETHASONE
     Indication: PHILADELPHIA CHROMOSOME POSITIVE
     Route: 065
  9. ETOPOSIDE. [Suspect]
     Active Substance: ETOPOSIDE
     Indication: ACUTE LYMPHOCYTIC LEUKAEMIA
     Dosage: 140 MG, BID
     Route: 041
     Dates: start: 20130307, end: 20130309
  10. RASURITEK [Suspect]
     Active Substance: RASBURICASE
     Indication: PHILADELPHIA CHROMOSOME POSITIVE
     Route: 065
  11. SPRYCEL [Suspect]
     Active Substance: DASATINIB
     Indication: ACUTE LYMPHOCYTIC LEUKAEMIA
     Dosage: 40 MG, QD
     Route: 048
     Dates: start: 20121101, end: 20130924
  12. PREDONINE [Suspect]
     Active Substance: PREDNISOLONE
     Indication: ACUTE LYMPHOCYTIC LEUKAEMIA
     Dosage: 10 MG, BID
     Route: 042
     Dates: start: 20121018, end: 20121018
  13. METHOTREXATE. [Suspect]
     Active Substance: METHOTREXATE
     Indication: PHILADELPHIA CHROMOSOME POSITIVE
     Route: 065
  14. DECADRON [Suspect]
     Active Substance: DEXAMETHASONE
     Indication: ACUTE LYMPHOCYTIC LEUKAEMIA
     Dosage: 4.7 MG, TID
     Route: 048
     Dates: start: 20121025, end: 20121031
  15. CYLOCIDE [Suspect]
     Active Substance: CYTARABINE
     Indication: ACUTE LYMPHOCYTIC LEUKAEMIA
     Dosage: 100 MG, 4 TIMES/WK
     Route: 042
     Dates: start: 20121219, end: 20130112
  16. DAUNOMYCIN                         /00128201/ [Suspect]
     Active Substance: DAUNORUBICIN
     Indication: ACUTE LYMPHOCYTIC LEUKAEMIA
     Dosage: 42 MG, QWK
     Route: 041
     Dates: start: 20121025, end: 20121115
  17. FILDESIN [Suspect]
     Active Substance: VINDESINE SULFATE
     Indication: ACUTE LYMPHOCYTIC LEUKAEMIA
     Dosage: 3.8 MG, 2 TIMES/WK
     Route: 042
     Dates: start: 20130529, end: 20130603
  18. FILDESIN [Suspect]
     Active Substance: VINDESINE SULFATE
     Indication: PHILADELPHIA CHROMOSOME POSITIVE
     Route: 065
  19. EXCEGRAN [Concomitant]
     Active Substance: ZONISAMIDE
     Indication: PRODUCT USED FOR UNKNOWN INDICATION
     Dosage: 100 MG, BID
     Route: 048
     Dates: start: 20130116
  20. ONCOVIN [Suspect]
     Active Substance: VINCRISTINE SULFATE
     Indication: ACUTE LYMPHOCYTIC LEUKAEMIA
     Dosage: 2 MG, QWK
     Route: 042
     Dates: start: 20121025, end: 20121115
  21. METHOTREXATE. [Suspect]
     Active Substance: METHOTREXATE
     Indication: ACUTE LYMPHOCYTIC LEUKAEMIA
     Dosage: 6320 MG, QD
     Route: 041
     Dates: start: 20130529, end: 20130529
  22. METHOTREXATE. [Suspect]
     Active Substance: METHOTREXATE
     Indication: ACUTE LYMPHOCYTIC LEUKAEMIA
     Dosage: 12 MG, UNK
     Route: 028
     Dates: start: 20121018, end: 20121119
  23. CYLOCIDE [Suspect]
     Active Substance: CYTARABINE
     Indication: ACUTE LYMPHOCYTIC LEUKAEMIA
     Dosage: 30 MG, UNK
     Route: 028
     Dates: start: 20121029, end: 20121119
  24. CYLOCIDE [Suspect]
     Active Substance: CYTARABINE
     Indication: PHILADELPHIA CHROMOSOME POSITIVE
     Route: 065
  25. MYCOSYST [Concomitant]
     Active Substance: FLUCONAZOLE
     Indication: PROPHYLAXIS
     Dosage: 200 MG, QD
     Route: 048
     Dates: start: 20121014, end: 20131026
  26. PREDONINE [Suspect]
     Active Substance: PREDNISOLONE
     Indication: PHILADELPHIA CHROMOSOME POSITIVE
     Route: 065
  27. PREDONINE [Suspect]
     Active Substance: PREDNISOLONE
     Indication: ACUTE LYMPHOCYTIC LEUKAEMIA
     Dosage: 10 MG, UNK
     Route: 028
     Dates: start: 20121029, end: 20121119
  28. CYLOCIDE [Suspect]
     Active Substance: CYTARABINE
     Indication: PHILADELPHIA CHROMOSOME POSITIVE
     Route: 065
  29. ETOPOSIDE. [Suspect]
     Active Substance: ETOPOSIDE
     Indication: PHILADELPHIA CHROMOSOME POSITIVE
     Route: 065
  30. RASURITEK [Suspect]
     Active Substance: RASBURICASE
     Indication: ACUTE LYMPHOCYTIC LEUKAEMIA
     Dosage: 10.5 MG, QD
     Route: 041
     Dates: start: 20121018, end: 20121024
  31. CYLOCIDE [Suspect]
     Active Substance: CYTARABINE
     Indication: PHILADELPHIA CHROMOSOME POSITIVE
     Route: 065
  32. BAKTAR [Concomitant]
     Active Substance: SULFAMETHOXAZOLE\TRIMETHOPRIM
     Indication: PROPHYLAXIS
     Dosage: 2 G, 6 TIMES/WK
     Route: 048
     Dates: start: 20121022, end: 20131030
  33. ENDOXAN                            /00021101/ [Concomitant]
     Active Substance: CYCLOPHOSPHAMIDE
     Indication: PRODUCT USED FOR UNKNOWN INDICATION
     Dosage: 1300 MG, UNK
     Route: 041
     Dates: start: 20121217, end: 20130114
  34. ONCOVIN [Suspect]
     Active Substance: VINCRISTINE SULFATE
     Indication: PHILADELPHIA CHROMOSOME POSITIVE
     Route: 065
  35. METHOTREXATE. [Suspect]
     Active Substance: METHOTREXATE
     Indication: PHILADELPHIA CHROMOSOME POSITIVE
     Route: 065
  36. IFOMIDE [Suspect]
     Active Substance: IFOSFAMIDE
     Indication: PHILADELPHIA CHROMOSOME POSITIVE
     Route: 065

REACTIONS (3)
  - Non-alcoholic steatohepatitis [Recovering/Resolving]
  - Cardiac myxoma [Recovering/Resolving]
  - Encephalopathy [Recovering/Resolving]

NARRATIVE: CASE EVENT DATE: 20121202
